FAERS Safety Report 17131835 (Version 1)
Quarter: 2019Q4

REPORT INFORMATION
  Report Type: Spontaneous
  Country: US (occurrence: US)
  Receive Date: 20191209
  Receipt Date: 20191209
  Transmission Date: 20200122
  Serious: No
  Sender: FDA-Public Use
  Company Number: US-UCBSA-2016041368

PATIENT
  Sex: Female

DRUGS (2)
  1. VIMPAT [Suspect]
     Active Substance: LACOSAMIDE
     Dosage: 500 MG
  2. VIMPAT [Suspect]
     Active Substance: LACOSAMIDE
     Indication: AURA
     Dosage: 400 MG

REACTIONS (5)
  - Vision blurred [Unknown]
  - Dizziness [Unknown]
  - Intentional overdose [Unknown]
  - Asthenia [Unknown]
  - Balance disorder [Unknown]

NARRATIVE: CASE EVENT DATE: 2016
